FAERS Safety Report 5334323-9 (Version None)
Quarter: 2007Q2

REPORT INFORMATION
  Report Type: 
  Country: None (occurrence: None)
  Receive Date: 20070525
  Receipt Date: 20060411
  Transmission Date: 20071010
  Serious: Yes (Hospitalization)
  Sender: FDA-Public Use
  Company Number: US-BRISTOL-MYERS SQUIBB COMPANY-13343207

PATIENT
  Age: 4 Decade
  Sex: Female

DRUGS (3)
  1. CYTOXAN [Suspect]
     Indication: DRUG USE FOR UNKNOWN INDICATION
  2. ADRIAMYCIN PFS [Suspect]
     Indication: DRUG USE FOR UNKNOWN INDICATION
  3. TAXOTERE [Suspect]
     Indication: DRUG USE FOR UNKNOWN INDICATION

REACTIONS (1)
  - INFECTION [None]
